FAERS Safety Report 6190829-4 (Version None)
Quarter: 2009Q2

REPORT INFORMATION
  Report Type: 
  Country: None (occurrence: None)
  Receive Date: 20090514
  Receipt Date: 20090508
  Transmission Date: 20091009
  Serious: Yes (Death, Other)
  Sender: FDA-Public Use
  Company Number: PHHY2009JP15334

PATIENT
  Age: 73 Year
  Sex: Male
  Weight: 68 kg

DRUGS (6)
  1. GLEEVEC [Suspect]
  2. GEMCITABINE [Concomitant]
  3. TEGAFUR [Concomitant]
  4. CISPLATIN [Concomitant]
  5. FLUOROURACIL [Concomitant]
  6. INTERFERON [Concomitant]
     Dosage: UNK

REACTIONS (14)
  - ANAEMIA [None]
  - ASCITES [None]
  - BILE DUCT CANCER [None]
  - BONE MARROW FAILURE [None]
  - CONJUNCTIVAL PALLOR [None]
  - DUODENAL ULCER [None]
  - GALLBLADDER CANCER METASTATIC [None]
  - GASTROINTESTINAL CANCER METASTATIC [None]
  - HEPATIC ADENOMA [None]
  - HEPATIC ENZYME INCREASED [None]
  - HEPATIC MASS [None]
  - HEPATIC NEOPLASM [None]
  - MALIGNANT NEOPLASM PROGRESSION [None]
  - SHOCK HAEMORRHAGIC [None]
